FAERS Safety Report 6156747-2 (Version None)
Quarter: 2009Q2

REPORT INFORMATION
  Report Type: 
  Country: None (occurrence: None)
  Receive Date: 20090413
  Receipt Date: 20090311
  Transmission Date: 20091009
  Serious: No
  Sender: FDA-Public Use
  Company Number: 2009BM000059

PATIENT
  Age: 15 Year
  Sex: Male
  Weight: 68 kg

DRUGS (3)
  1. KUVAN [Suspect]
     Indication: PHENYLKETONURIA
     Dosage: 1300 MG;QD;PO
     Route: 048
     Dates: start: 20090114
  2. ABILIFY [Concomitant]
  3. ADDERALL 10 [Concomitant]

REACTIONS (3)
  - AGGRESSION [None]
  - DIZZINESS [None]
  - SOMNOLENCE [None]
